FAERS Safety Report 9792821 (Version 1)
Quarter: 2014Q1

REPORT INFORMATION
  Report Type: Spontaneous
  Country: US (occurrence: US)
  Receive Date: 20140102
  Receipt Date: 20140102
  Transmission Date: 20141002
  Serious: No
  Sender: FDA-Public Use
  Company Number: US-SA-2013SA115155

PATIENT
  Sex: Female

DRUGS (5)
  1. AUBAGIO [Suspect]
     Indication: PRODUCT USED FOR UNKNOWN INDICATION
     Route: 048
     Dates: start: 201005
  2. DIPHENHYDRAMINE HYDROCHLORIDE [Concomitant]
  3. VALTREX [Concomitant]
  4. FISH OIL [Concomitant]
  5. MULTIVITAMINS [Concomitant]

REACTIONS (2)
  - Dyspnoea [Unknown]
  - Benign hepatic neoplasm [Unknown]
